FAERS Safety Report 15773825 (Version 1)
Quarter: 2018Q4

REPORT INFORMATION
  Report Type: Spontaneous
  Country: NL (occurrence: NL)
  Receive Date: 20181229
  Receipt Date: 20181229
  Transmission Date: 20190205
  Serious: Yes (Hospitalization)
  Sender: FDA-Public Use
  Company Number: NL-TEVA-2018-NL-992479

PATIENT
  Age: 77 Year
  Sex: Male
  Weight: 100 kg

DRUGS (10)
  1. LISONOPRIL 2,5MG [Concomitant]
     Dosage: 1 DOSAGE FORMS DAILY;
  2. ALFUSOZINE 10MG [Concomitant]
     Dosage: 1 DOSAGE FORMS DAILY; 1X
  3. ACETYLS 80MG [Concomitant]
     Dosage: 1 DOSAGE FORMS DAILY;
  4. CIPROFLOXACINE3MG [Suspect]
     Active Substance: CIPROFLOXACIN
     Indication: DYSPNOEA
     Dosage: 4 DOSAGE FORMS DAILY; 2X2 TABLETS PER DAY
     Route: 065
     Dates: start: 20170628, end: 20170710
  5. TOUJEO [Concomitant]
     Active Substance: INSULIN GLARGINE
     Dosage: 68 IU (INTERNATIONAL UNIT) DAILY; 1XPER DAY68 UNITS TOUJEO LONG-ACTING..
     Route: 065
  6. VITAMINE B12 1000MCG [Concomitant]
     Route: 065
  7. BETANANINE 1MG [Concomitant]
     Dosage: 2 DOSAGE FORMS DAILY;
     Route: 065
  8. DEXAMETASON 4MG [Suspect]
     Active Substance: DEXAMETHASONE
     Dosage: 4 DOSAGE FORMS DAILY; 2X2 TABLETS PER DAY
     Dates: start: 20170628, end: 20170710
  9. NOVORAPID [Concomitant]
     Active Substance: INSULIN ASPART
     Dosage: 3 DOSAGE FORMS DAILY; 3XPER DAY SPRAY 26-22 UNITS
     Route: 065
  10. PANTAPROSOL 40MG [Concomitant]
     Dosage: 1 DOSAGE FORMS DAILY;
     Route: 065

REACTIONS (3)
  - Dyspnoea [Recovered/Resolved with Sequelae]
  - Oedema peripheral [Recovered/Resolved with Sequelae]
  - Condition aggravated [Recovered/Resolved with Sequelae]

NARRATIVE: CASE EVENT DATE: 20170710
